FAERS Safety Report 9121986 (Version 1)
Quarter: 2013Q1

REPORT INFORMATION
  Report Type: Spontaneous
  Country: US (occurrence: None)
  Receive Date: 20130227
  Receipt Date: 20130227
  Transmission Date: 20140127
  Serious: Yes (Life-Threatening, Hospitalization)
  Sender: FDA-Public Use
  Company Number: None

PATIENT
  Age: 22 Year
  Sex: Female
  Weight: 91 kg

DRUGS (1)
  1. RU-486 [Suspect]
     Indication: ABORTION INDUCED
     Dates: start: 20130116, end: 20130118

REACTIONS (3)
  - Ruptured ectopic pregnancy [None]
  - Exposure during pregnancy [None]
  - False negative pregnancy test [None]
